FAERS Safety Report 8977439 (Version 2)
Quarter: 2013Q1

REPORT INFORMATION
  Report Type: Spontaneous
  Country: US (occurrence: US)
  Receive Date: 20121220
  Receipt Date: 20130131
  Transmission Date: 20140127
  Serious: Yes (Death, Other)
  Sender: FDA-Public Use
  Company Number: US-PFIZER INC-2012289818

PATIENT
  Age: 22 Year
  Sex: Female

DRUGS (12)
  1. MORPHINE SULFATE [Suspect]
     Indication: PAIN
     Dosage: UNK
     Route: 048
  2. PROMETHAZINE HCL [Suspect]
     Dosage: UNK
     Route: 065
  3. METHADONE [Suspect]
     Indication: PAIN
     Dosage: UNK
     Route: 065
  4. HYDROMORPHONE HYDROCHLORIDE [Suspect]
     Dosage: UNK
     Route: 065
  5. FENTANYL [Suspect]
     Dosage: 75 MG, UNK
     Route: 065
  6. MARIJUANA [Suspect]
     Indication: DRUG ABUSE
     Dosage: UNK
  7. PROCHLORPERAZINE [Concomitant]
     Dosage: UNK
  8. QUETIAPINE [Concomitant]
     Dosage: UNK
  9. METHORPHAN [Concomitant]
     Dosage: UNK
  10. VENLAFAXINE [Concomitant]
     Dosage: UNK
  11. NORTRIPTYLINE [Concomitant]
     Dosage: UNK
  12. DIAZEPAM [Concomitant]
     Dosage: UNK

REACTIONS (2)
  - Overdose [Fatal]
  - Substance abuse [Unknown]
